FAERS Safety Report 16791495 (Version 2)
Quarter: 2019Q3

REPORT INFORMATION
  Report Type: Spontaneous
  Country: NO (occurrence: NO)
  Receive Date: 20190910
  Receipt Date: 20190920
  Transmission Date: 20191005
  Serious: Yes (Other)
  Sender: FDA-Public Use
  Company Number: NO-MALLINCKRODT-T201906213

PATIENT
  Age: 6 Year
  Sex: Male
  Weight: 25 kg

DRUGS (2)
  1. HEPARIN [Concomitant]
     Active Substance: HEPARIN SODIUM
     Indication: ANTICOAGULANT THERAPY
     Dosage: UNK
     Route: 065
  2. UVADEX [Suspect]
     Active Substance: METHOXSALEN
     Indication: CHRONIC GRAFT VERSUS HOST DISEASE
     Dosage: UNK, EXTRACORPOREAL
     Route: 050
     Dates: start: 20190829, end: 20190829

REACTIONS (9)
  - Haematocrit decreased [Unknown]
  - Malaise [Unknown]
  - Bronchial secretion retention [Recovering/Resolving]
  - Haemoglobin decreased [Unknown]
  - Hypotension [Unknown]
  - Cough [Recovering/Resolving]
  - Product use in unapproved indication [Unknown]
  - Device use error [Unknown]
  - Heart rate increased [Unknown]

NARRATIVE: CASE EVENT DATE: 201908
